FAERS Safety Report 5377767-1 (Version None)
Quarter: 2007Q2

REPORT INFORMATION
  Report Type: 
  Country: None (occurrence: None)
  Receive Date: 20070629
  Receipt Date: 20070625
  Transmission Date: 20071010
  Serious: Yes (Death, Hospitalization)
  Sender: FDA-Public Use
  Company Number: LTI2007A00138

PATIENT
  Age: 73 Year
  Sex: Male

DRUGS (5)
  1. LEUPROLIDE ACETATE [Suspect]
     Indication: PROSTATE CANCER
     Dosage: 1 DF (1 DF, 1 IN 3 M) SUBCUTANEOUS
     Route: 058
  2. XATRAL (ALFUZOSIN) [Suspect]
     Indication: BENIGN PROSTATIC HYPERPLASIA
     Dosage: 10 MG (10 MG, 1 IN 1 D) ORAL
     Route: 048
  3. DESLORATADINE [Suspect]
     Dosage: 1 DF (1 DF, 1 IN 1 D) ORAL
     Route: 048
  4. PREVISCAN (FLUINDIONE) (TABLETS) [Suspect]
     Indication: PHLEBITIS
     Dosage: 20 MG (20 MG, 1 IN 1 D) ORAL
     Route: 048
     Dates: start: 20070220, end: 20070221
  5. PREVISCAN (FLUINDIONE) (TABLETS) [Suspect]
     Indication: THROMBOPHLEBITIS
     Dosage: 20 MG (20 MG, 1 IN 1 D) ORAL
     Route: 048
     Dates: start: 20070220, end: 20070221

REACTIONS (3)
  - DRUG EFFECT DECREASED [None]
  - INFECTION [None]
  - VASCULAR PURPURA [None]
